FAERS Safety Report 25071895 (Version 2)
Quarter: 2025Q2

REPORT INFORMATION
  Report Type: Report from Study
  Country: BR (occurrence: BR)
  Receive Date: 20250313
  Receipt Date: 20250404
  Transmission Date: 20250717
  Serious: Yes (Other)
  Sender: BIOGEN
  Company Number: BR-BIOGEN-2025BI01299545

PATIENT
  Age: 46 Year
  Sex: Female
  Weight: 75 kg

DRUGS (2)
  1. TYSABRI [Suspect]
     Active Substance: NATALIZUMAB
     Indication: Multiple sclerosis
     Route: 050
     Dates: start: 20230923
  2. TYSABRI [Suspect]
     Active Substance: NATALIZUMAB
     Route: 050

REACTIONS (4)
  - Osteomyelitis [Unknown]
  - Intervertebral disc protrusion [Not Recovered/Not Resolved]
  - Ocular procedural complication [Not Recovered/Not Resolved]
  - Spinal disorder [Not Recovered/Not Resolved]

NARRATIVE: CASE EVENT DATE: 20241201
